FAERS Safety Report 6188157-6 (Version None)
Quarter: 2009Q2

REPORT INFORMATION
  Report Type: 
  Country: None (occurrence: None)
  Receive Date: 20090513
  Receipt Date: 20081110
  Transmission Date: 20091009
  Serious: No
  Sender: FDA-Public Use
  Company Number: A0754007A

PATIENT
  Sex: Female

DRUGS (2)
  1. DYNACIRC CR [Suspect]
     Dosage: 5MG IN THE MORNING
     Route: 048
  2. MICARDIS HCT [Concomitant]
     Route: 048

REACTIONS (1)
  - BLOOD PRESSURE INCREASED [None]
